FAERS Safety Report 5815135-6 (Version None)
Quarter: 2008Q3

REPORT INFORMATION
  Report Type: 
  Country: None (occurrence: None)
  Receive Date: 20080718
  Receipt Date: 20080710
  Transmission Date: 20090109
  Serious: Yes (Hospitalization, Other)
  Sender: FDA-Public Use
  Company Number: JP-BRISTOL-MYERS SQUIBB COMPANY-14223309

PATIENT
  Age: 35 Year
  Sex: Female
  Weight: 59 kg

DRUGS (16)
  1. ABILIFY [Suspect]
     Indication: SCHIZOPHRENIA
     Dosage: 6MGBID:18MAY-07JUN07;9MGBID:09JUN07-11APR08;12MGBID:12APR-18MAY08;12MGQD:19-25MAY08;12MGBID:26-MAY08
     Route: 048
     Dates: start: 20070518
  2. DEPAKENE [Suspect]
     Dosage: RESTARTED FROM 26MAY08
     Route: 048
     Dates: end: 20080519
  3. TEGRETOL [Suspect]
     Dosage: 28FEB08 - 19MAY08, RESTARTED FROM 26MAY08-CONT
     Route: 048
     Dates: start: 20080228
  4. LULLAN [Concomitant]
     Dates: end: 20070608
  5. DEPAS [Concomitant]
     Dates: end: 20080130
  6. AKINETON [Concomitant]
     Dates: end: 20070615
  7. RIVOTRIL [Concomitant]
  8. NEUROVITAN [Concomitant]
  9. HALCION [Concomitant]
     Dates: start: 20060804, end: 20070906
  10. CALONAL [Concomitant]
     Dates: start: 20061117
  11. EVAMYL [Concomitant]
     Dates: start: 20070411, end: 20071030
  12. ROHYPNOL [Concomitant]
     Dates: start: 20070907, end: 20080525
  13. ALOSENN [Concomitant]
     Dates: start: 20080130
  14. FOLIAMIN [Concomitant]
     Dates: start: 20080424
  15. FLUNITRAZEPAM [Concomitant]
     Dates: start: 20080526
  16. LEVOTOMIN [Concomitant]
     Dates: start: 20080526

REACTIONS (4)
  - ABORTION SPONTANEOUS [None]
  - BLOOD URINE PRESENT [None]
  - PREGNANCY [None]
  - PROTEIN URINE PRESENT [None]
